FAERS Safety Report 8213461-7 (Version None)
Quarter: 2012Q1

REPORT INFORMATION
  Report Type: 
  Country: None (occurrence: None)
  Receive Date: 20120315
  Receipt Date: 20120309
  Transmission Date: 20120608
  Serious: Yes (Hospitalization, Other)
  Sender: FDA-Public Use
  Company Number: US-ABBOTT-11P-163-0870223-00

PATIENT
  Sex: Female
  Weight: 55.388 kg

DRUGS (1)
  1. SYNTHROID [Suspect]
     Indication: HYPOTHYROIDISM
     Dosage: 75 MG
     Dates: start: 19970101, end: 20111024

REACTIONS (13)
  - CARDIAC DISORDER [None]
  - PHOTOPSIA [None]
  - PALPITATIONS [None]
  - WEIGHT DECREASED [None]
  - SENSORY DISTURBANCE [None]
  - FEAR [None]
  - THERAPEUTIC RESPONSE UNEXPECTED [None]
  - NODULE [None]
  - ALOPECIA [None]
  - SKIN TIGHTNESS [None]
  - PANIC ATTACK [None]
  - THYROID DISORDER [None]
  - ANXIETY [None]
